FAERS Safety Report 7717382-5 (Version None)
Quarter: 2011Q3

REPORT INFORMATION
  Report Type: 
  Country: None (occurrence: None)
  Receive Date: 20110830
  Receipt Date: 20110820
  Transmission Date: 20111222
  Serious: Yes (Death, Hospitalization)
  Sender: FDA-Public Use
  Company Number: US-JNJFOC-20110710057

PATIENT
  Sex: Female
  Weight: 156.49 kg

DRUGS (6)
  1. REMICADE [Suspect]
     Dosage: PATIENT RECEIVED A TOTAL OF 2 INFLIXIMAB INFUSIONS.
     Route: 042
     Dates: start: 20110101
  2. REMICADE [Suspect]
     Indication: SYSTEMIC LUPUS ERYTHEMATOSUS
     Route: 042
     Dates: start: 20110707
  3. BENADRYL [Concomitant]
     Indication: PREMEDICATION
     Route: 042
     Dates: start: 20110707
  4. REMICADE [Suspect]
     Indication: RHEUMATOID ARTHRITIS
     Route: 042
     Dates: start: 20110707
  5. REMICADE [Suspect]
     Dosage: PATIENT RECEIVED A TOTAL OF 2 INFLIXIMAB INFUSIONS.
     Route: 042
     Dates: start: 20110101
  6. SOLU-MEDROL [Concomitant]
     Indication: PREMEDICATION
     Route: 042
     Dates: start: 20110707

REACTIONS (6)
  - HYPERGLYCAEMIA [None]
  - CONVULSION [None]
  - MYOCARDIAL INFARCTION [None]
  - INFUSION RELATED REACTION [None]
  - RESPIRATORY FAILURE [None]
  - FLUSHING [None]
